FAERS Safety Report 18208189 (Version 2)
Quarter: 2020Q4

REPORT INFORMATION
  Report Type: Spontaneous
  Country: JP (occurrence: JP)
  Receive Date: 20200828
  Receipt Date: 20201126
  Transmission Date: 20210113
  Serious: Yes (Other)
  Sender: FDA-Public Use
  Company Number: JP-BRISTOL-MYERS SQUIBB COMPANY-BMS-2020-069818

PATIENT
  Age: 77 Year
  Sex: Female

DRUGS (2)
  1. ANTIPYRETICS, ANALGESICS AND ANTI-INFLAMMATORY AGENTS [Concomitant]
     Active Substance: UNSPECIFIED INGREDIENT
     Indication: PAIN
     Dosage: UNK
     Route: 065
  2. HYDREA [Suspect]
     Active Substance: HYDROXYUREA
     Indication: PRODUCT USED FOR UNKNOWN INDICATION
     Dosage: UNAVAILABLE
     Route: 065

REACTIONS (4)
  - Faeces discoloured [Unknown]
  - Pain [Unknown]
  - Blood potassium increased [Unknown]
  - Gastrointestinal haemorrhage [Unknown]
